FAERS Safety Report 6453909-1 (Version None)
Quarter: 2009Q4

REPORT INFORMATION
  Report Type: 
  Country: None (occurrence: None)
  Receive Date: 20091124
  Receipt Date: 20091116
  Transmission Date: 20100525
  Serious: Yes (Hospitalization)
  Sender: FDA-Public Use
  Company Number: FR-PFIZER INC-2009297868

PATIENT
  Age: 39 Year
  Sex: Male

DRUGS (6)
  1. NEURONTIN [Suspect]
     Indication: EPILEPSY
     Dosage: 800 MG, 3X/DAY
     Route: 048
     Dates: start: 20090601
  2. DEPAKINE CHRONO [Suspect]
     Indication: EPILEPSY
     Dosage: 1000 MG, 2X/DAY
     Route: 048
     Dates: start: 20090601
  3. RIVOTRIL [Suspect]
     Indication: EPILEPSY
     Dosage: UNK
     Route: 048
     Dates: start: 20090601, end: 20090608
  4. RIVOTRIL [Suspect]
     Dosage: UNK
     Route: 048
     Dates: start: 20090609, end: 20090708
  5. TRILEPTAL [Concomitant]
     Indication: EPILEPSY
     Dosage: UNK
     Route: 048
     Dates: start: 20090709
  6. AUGMENTIN [Concomitant]
     Dosage: UNK
     Route: 048
     Dates: start: 20090610

REACTIONS (4)
  - AUTONOMIC NERVOUS SYSTEM IMBALANCE [None]
  - DYSARTHRIA [None]
  - POVERTY OF THOUGHT CONTENT [None]
  - PSYCHOMOTOR SKILLS IMPAIRED [None]
